FAERS Safety Report 24044175 (Version 1)
Quarter: 2024Q3

REPORT INFORMATION
  Report Type: Spontaneous
  Country: US (occurrence: US)
  Receive Date: 20240703
  Receipt Date: 20240703
  Transmission Date: 20241016
  Serious: Yes (Life-Threatening, Hospitalization, Other)
  Sender: APOTEX
  Company Number: US-APOTEX-2024AP007781

PATIENT
  Age: 26 Year
  Sex: Male

DRUGS (3)
  1. DEXAMETHASONE [Suspect]
     Active Substance: DEXAMETHASONE
     Indication: Product used for unknown indication
     Dosage: 6 MILLIGRAM, QD
     Route: 065
  2. TACROLIMUS [Suspect]
     Active Substance: TACROLIMUS
     Indication: Product used for unknown indication
     Dosage: UNK
     Route: 065
  3. PREDNISONE [Suspect]
     Active Substance: PREDNISONE
     Indication: Product used for unknown indication
     Dosage: UNK
     Route: 065

REACTIONS (12)
  - SARS-CoV-2 viraemia [Unknown]
  - COVID-19 [Unknown]
  - Acute respiratory distress syndrome [Unknown]
  - Gastrointestinal haemorrhage [Recovering/Resolving]
  - Pulmonary haemorrhage [Recovering/Resolving]
  - Catheter site haemorrhage [Recovering/Resolving]
  - Respiratory tract haemorrhage [Recovering/Resolving]
  - Hypofibrinogenaemia [Unknown]
  - Anaemia [Unknown]
  - Haemoptysis [Unknown]
  - Coagulopathy [Recovering/Resolving]
  - Thrombocytopenia [Unknown]
